FAERS Safety Report 4863014-3 (Version None)
Quarter: 2005Q4

REPORT INFORMATION
  Report Type: 
  Country: None (occurrence: None)
  Receive Date: 20051221
  Receipt Date: 20051212
  Transmission Date: 20060501
  Serious: Yes (Death, Other)
  Sender: FDA-Public Use
  Company Number: DE-MERCK-0512USA02959

PATIENT
  Age: 38 Year
  Sex: Male

DRUGS (6)
  1. DECADRON [Suspect]
     Indication: CHEMOTHERAPY
     Route: 048
     Dates: start: 20020801
  2. GEMCITABINE [Suspect]
     Indication: CHEMOTHERAPY
     Route: 065
     Dates: start: 20030401
  3. IFOSFAMIDE [Suspect]
     Indication: CHEMOTHERAPY
     Route: 065
  4. VINCRISTINE SULFATE [Suspect]
     Indication: CHEMOTHERAPY
     Route: 065
  5. DOXORUBICIN [Suspect]
     Indication: CHEMOTHERAPY
     Route: 065
  6. RITUXIMAB [Suspect]
     Indication: CHEMOTHERAPY
     Route: 065
     Dates: start: 20030601

REACTIONS (14)
  - BLOOD LACTATE DEHYDROGENASE INCREASED [None]
  - DIALYSIS [None]
  - DISEASE PROGRESSION [None]
  - EPILEPSY [None]
  - HAEMOLYTIC URAEMIC SYNDROME [None]
  - HODGKIN'S DISEASE [None]
  - HYPERTENSION [None]
  - MALIGNANT NEOPLASM PROGRESSION [None]
  - NON-HODGKIN'S LYMPHOMA [None]
  - OEDEMA PERIPHERAL [None]
  - RECURRENT CANCER [None]
  - SOMNOLENCE [None]
  - THERAPY NON-RESPONDER [None]
  - ULCER [None]
